FAERS Safety Report 8360570-8 (Version None)
Quarter: 2012Q2

REPORT INFORMATION
  Report Type: 
  Country: None (occurrence: None)
  Receive Date: 20120515
  Receipt Date: 20120513
  Transmission Date: 20120825
  Serious: Yes (Death)
  Sender: FDA-Public Use
  Company Number: PHHY2012SA040823

PATIENT

DRUGS (2)
  1. AFINITOR [Suspect]
     Indication: BREAST CANCER
     Dosage: 5 MG, DAILY
     Route: 048
  2. LAPATINIB [Concomitant]

REACTIONS (1)
  - DEATH [None]
